FAERS Safety Report 18355915 (Version 8)
Quarter: 2021Q4

REPORT INFORMATION
  Report Type: Spontaneous
  Country: IN (occurrence: IN)
  Receive Date: 20201007
  Receipt Date: 20211230
  Transmission Date: 20220303
  Serious: Yes (Hospitalization, Other)
  Sender: FDA-Public Use
  Company Number: IN-PFIZER INC-2020089541

PATIENT
  Age: 48 Year
  Sex: Female

DRUGS (11)
  1. PALBOCICLIB [Suspect]
     Active Substance: PALBOCICLIB
     Indication: Breast cancer metastatic
     Dosage: 125 MG, CYCLIC (ONCE DAILY (OD), ON 3 WEEKS, STOP FOR 7 DAYS; AFTER FOOD)
     Route: 048
     Dates: start: 20200122
  2. LETROZ [Concomitant]
     Dosage: 2.5 MG, 1X/DAY
     Route: 048
  3. CALCIUM CITRATE MALATE [Concomitant]
     Active Substance: CALCIUM CITRATE MALATE
     Dosage: UNK, 2X/DAY
  4. ZOLEDRONIC ACID [Concomitant]
     Active Substance: ZOLEDRONIC ACID
     Dosage: 4 MG, CYCLIC: 1 EVERY 3 MONTHS
  5. SODIUM CHLORIDE [Concomitant]
     Active Substance: SODIUM CHLORIDE
     Dosage: 100 ML
  6. ONDET [Concomitant]
     Dosage: 2 ML
  7. ZIPANT [Concomitant]
     Dosage: 40 MG
  8. BETADINE [Concomitant]
     Active Substance: POVIDONE-IODINE
     Dosage: UNK, MWF 1-1-1
  9. GRILINCTUS [AMMONIUM CHLORIDE;CHLORPHENAMINE MALEATE;DEXTROMETHORPHAN [Concomitant]
     Dosage: AT BED TIME
  10. SHELCAL [CALCIUM CARBONATE;COLECALCIFEROL] [Concomitant]
     Dosage: 500 MG (0-0-1)
  11. OSTEOFOS [Concomitant]
     Dosage: UNK

REACTIONS (9)
  - Cough [Unknown]
  - Dyspnoea [Unknown]
  - Neutropenia [Unknown]
  - Nasal congestion [Unknown]
  - Mouth ulceration [Unknown]
  - Oropharyngeal pain [Unknown]
  - Heart rate increased [Unknown]
  - Neoplasm progression [Unknown]
  - White blood cell count decreased [Unknown]

NARRATIVE: CASE EVENT DATE: 20200101
